FAERS Safety Report 6179571-3 (Version None)
Quarter: 2009Q2

REPORT INFORMATION
  Report Type: 
  Country: None (occurrence: None)
  Receive Date: 20090501
  Receipt Date: 20090501
  Transmission Date: 20091009
  Serious: No
  Sender: FDA-Public Use
  Company Number: None

PATIENT
  Age: 77 Year
  Sex: Female
  Weight: 84.369 kg

DRUGS (1)
  1. JANUVIA [Suspect]
     Indication: DIABETES MELLITUS
     Dosage: 1 TABLET ONCE A DAY
     Dates: start: 20090418, end: 20090430

REACTIONS (6)
  - DISORIENTATION [None]
  - DIZZINESS [None]
  - HEADACHE [None]
  - PRESYNCOPE [None]
  - RHINORRHOEA [None]
  - SNEEZING [None]
